FAERS Safety Report 10556084 (Version 5)
Quarter: 2015Q3

REPORT INFORMATION
  Report Type: Report from Study
  Country: US (occurrence: US)
  Receive Date: 20141030
  Receipt Date: 20150903
  Transmission Date: 20151125
  Serious: Yes (Other)
  Sender: FDA-Public Use
  Company Number: US-SA-2014SA145644

PATIENT
  Age: 55 Year
  Sex: Female

DRUGS (2)
  1. AUBAGIO [Suspect]
     Active Substance: TERIFLUNOMIDE
     Indication: MULTIPLE SCLEROSIS
     Route: 048
     Dates: start: 20140826
  2. AUBAGIO [Suspect]
     Active Substance: TERIFLUNOMIDE
     Indication: MULTIPLE SCLEROSIS
     Route: 048
     Dates: start: 20150826

REACTIONS (7)
  - Musculoskeletal stiffness [Unknown]
  - Hypokinesia [Recovering/Resolving]
  - Tremor [Unknown]
  - Memory impairment [Recovering/Resolving]
  - Feeling abnormal [Unknown]
  - Abasia [Unknown]
  - Slow speech [Recovering/Resolving]
